FAERS Safety Report 7233293-6 (Version None)
Quarter: 2011Q1

REPORT INFORMATION
  Report Type: 
  Country: None (occurrence: None)
  Receive Date: 20110119
  Receipt Date: 20110106
  Transmission Date: 20110831
  Serious: No
  Sender: FDA-Public Use
  Company Number: US-B.I. PHARMACEUTICALS,INC./RIDGEFIELD-2011-BP-00829BP

PATIENT
  Age: 63 Year
  Sex: Female

DRUGS (2)
  1. SPIRIVA [Suspect]
     Dosage: 18 MCG
     Route: 055
     Dates: start: 20100901
  2. SPIRIVA [Suspect]
     Indication: CHRONIC OBSTRUCTIVE PULMONARY DISEASE
     Route: 055
     Dates: start: 20080101

REACTIONS (9)
  - ERUCTATION [None]
  - ORAL CANDIDIASIS [None]
  - DYSPEPSIA [None]
  - DRY MOUTH [None]
  - THROAT IRRITATION [None]
  - PAROSMIA [None]
  - DYSGEUSIA [None]
  - NAUSEA [None]
  - TINNITUS [None]
